FAERS Safety Report 17155398 (Version 1)
Quarter: 2019Q4

REPORT INFORMATION
  Report Type: Spontaneous
  Country: US (occurrence: US)
  Receive Date: 20191215
  Receipt Date: 20191215
  Transmission Date: 20200122
  Serious: No
  Sender: FDA-Public Use
  Company Number: US-ENDO PHARMACEUTICALS INC-2019-100781

PATIENT
  Age: 60 Year
  Sex: Male
  Weight: 83.9 kg

DRUGS (2)
  1. XIAFLEX [Suspect]
     Active Substance: COLLAGENASE CLOSTRIDIUM HISTOLYTICUM
     Indication: PEYRONIE^S DISEASE
     Dosage: UNK UNKNOWN, CYCLE 1, INJECTION 1
     Route: 026
     Dates: start: 20180806
  2. XIAFLEX [Suspect]
     Active Substance: COLLAGENASE CLOSTRIDIUM HISTOLYTICUM
     Dosage: UNK UNKNOWN, CYCLE 1, INJECTION 2
     Route: 026
     Dates: start: 20181120, end: 20181120

REACTIONS (12)
  - Wound drainage [Unknown]
  - Product administration error [Recovered/Resolved]
  - Penile contusion [Unknown]
  - Blood pressure increased [Recovered/Resolved]
  - Wrong technique in product usage process [Recovered/Resolved]
  - Penile swelling [Unknown]
  - Wound [Unknown]
  - Wound secretion [Recovered/Resolved]
  - Haemorrhage subcutaneous [Unknown]
  - Skin exfoliation [Recovered/Resolved]
  - Blood blister [Unknown]
  - Procedural pain [Unknown]

NARRATIVE: CASE EVENT DATE: 2018
